FAERS Safety Report 5410406-X (Version None)
Quarter: 2007Q3

REPORT INFORMATION
  Report Type: 
  Country: None (occurrence: None)
  Receive Date: 20070713
  Receipt Date: 20070601
  Transmission Date: 20080115
  Serious: No
  Sender: FDA-Public Use
  Company Number: 2007SP002078

PATIENT
  Age: 61 Year
  Sex: Female
  Weight: 70.3075 kg

DRUGS (10)
  1. LUNESTA [Suspect]
     Indication: INSOMNIA
     Dosage: 3 MG;ORAL
     Route: 048
     Dates: end: 20070101
  2. ALCOHOL [Suspect]
     Dosage: ORAL
     Route: 048
  3. ZIAC [Concomitant]
  4. LEXAPRO [Concomitant]
  5. SYNTHROID [Concomitant]
  6. ALISKIREN [Concomitant]
  7. ACIPHEX [Concomitant]
  8. ATIVAN [Concomitant]
  9. SINGULAIR [Concomitant]
  10. ALLEGRA [Concomitant]

REACTIONS (1)
  - PARASOMNIA [None]
